FAERS Safety Report 8793380 (Version 1)
Quarter: 2012Q4

REPORT INFORMATION
  Report Type: 
  Country: US (occurrence: US)
  Receive Date: 20120918
  Receipt Date: 20120918
  Transmission Date: 20130627
  Serious: Yes (Hospitalization)
  Sender: FDA-Public Use
  Company Number: US-SHIRE-ALL1-2012-04370

PATIENT
  Age: 39 None
  Sex: Female
  Weight: 113.38 kg

DRUGS (2)
  1. LIALDA [Suspect]
     Indication: COLITIS ULCERATIVE
     Dosage: 1.2 g, 4x/day:qid
     Route: 048
     Dates: start: 20120805, end: 20120830
  2. LISINOPRIL [Concomitant]
     Indication: HYPERTENSION
     Dosage: UNK, 1x/day:qd (20-25 mg tablet once daily)
     Route: 048
     Dates: start: 2011, end: 20120830

REACTIONS (4)
  - Pancreatitis [Recovered/Resolved]
  - Hypotension [Not Recovered/Not Resolved]
  - Diarrhoea haemorrhagic [Recovered/Resolved]
  - Inappropriate schedule of drug administration [Recovered/Resolved]
